FAERS Safety Report 8937941 (Version 1)
Quarter: 2012Q4

REPORT INFORMATION
  Report Type: Spontaneous
  Country: US (occurrence: None)
  Receive Date: 20121128
  Receipt Date: 20121128
  Transmission Date: 20130627
  Serious: Yes (Other)
  Sender: FDA-Public Use
  Company Number: None

PATIENT
  Sex: Female
  Weight: 72.58 kg

DRUGS (1)
  1. PERCOCET 10/325 1 [Suspect]
     Dosage: 10/325 1 q4 (p.o.)
     Route: 048
     Dates: start: 201201

REACTIONS (1)
  - Drug ineffective [None]
